FAERS Safety Report 6982022-X (Version None)
Quarter: 2010Q3

REPORT INFORMATION
  Report Type: 
  Country: None (occurrence: None)
  Receive Date: 20100914
  Receipt Date: 20091118
  Transmission Date: 20110219
  Serious: No
  Sender: FDA-Public Use
  Company Number: US-PFIZER INC-2009282892

PATIENT
  Age: 52 Year
  Sex: Female

DRUGS (6)
  1. LYRICA [Suspect]
     Dosage: 200 MG, 2X/DAY
     Dates: start: 20090101
  2. PREDNISONE [Suspect]
     Dosage: UNK
  3. DOXYCYCLINE CALCIUM [Suspect]
     Dosage: UNK
  4. METFORMIN HCL [Suspect]
     Dosage: UNK
  5. LISINOPRIL [Suspect]
     Dosage: UNK
  6. LASIX [Suspect]
     Dosage: UNK

REACTIONS (1)
  - TREMOR [None]
